FAERS Safety Report 22876775 (Version 5)
Quarter: 2023Q4

REPORT INFORMATION
  Report Type: Spontaneous
  Country: US (occurrence: US)
  Receive Date: 20230829
  Receipt Date: 20231219
  Transmission Date: 20240110
  Serious: Yes (Other)
  Sender: FDA-Public Use
  Company Number: US-PFIZER INC-PV202300144999

PATIENT
  Age: 50 Year
  Sex: Female

DRUGS (2)
  1. IBRANCE [Suspect]
     Active Substance: PALBOCICLIB
     Dosage: UNK
  2. FULVESTRANT [Suspect]
     Active Substance: FULVESTRANT
     Dosage: UNK

REACTIONS (8)
  - Neuropathy peripheral [Unknown]
  - Upper-airway cough syndrome [Unknown]
  - Rash [Recovered/Resolved]
  - Neoplasm progression [Unknown]
  - White blood cell count decreased [Unknown]
  - Infection susceptibility increased [Unknown]
  - Dysgeusia [Unknown]
  - Red blood cell count decreased [Unknown]
